FAERS Safety Report 8584111-5 (Version None)
Quarter: 2012Q3

REPORT INFORMATION
  Report Type: 
  Country: None (occurrence: None)
  Receive Date: 20120810
  Receipt Date: 20120807
  Transmission Date: 20120928
  Serious: No
  Sender: FDA-Public Use
  Company Number: US-009507513-1208USA003324

PATIENT

DRUGS (1)
  1. PEG-INTRON [Suspect]

REACTIONS (2)
  - INJECTION SITE RASH [None]
  - PAIN IN EXTREMITY [None]
